FAERS Safety Report 19651301 (Version 1)
Quarter: 2021Q3

REPORT INFORMATION
  Report Type: Spontaneous
  Country: NL (occurrence: NL)
  Receive Date: 20210803
  Receipt Date: 20210803
  Transmission Date: 20211014
  Serious: Yes (Other)
  Sender: FDA-Public Use
  Company Number: NL-MYLANLABS-2021M1047198

PATIENT
  Age: 4 Year
  Sex: Male

DRUGS (1)
  1. PREDNISOLONE. [Suspect]
     Active Substance: PREDNISOLONE
     Indication: ACQUIRED EPILEPTIC APHASIA
     Dosage: 1 MILLIGRAM/KILOGRAM, RECEIVED 1MG/KG BODY WEIGHT AND THEN DOSE WAS INCREASED
     Route: 065

REACTIONS (1)
  - Drug ineffective [Unknown]
